FAERS Safety Report 20979539 (Version 1)
Quarter: 2022Q2

REPORT INFORMATION
  Report Type: Other
  Country: US (occurrence: None)
  Receive Date: 20220620
  Receipt Date: 20220620
  Transmission Date: 20220721
  Serious: Yes (Other)
  Sender: FDA-Public Use
  Company Number: US-ROCHE-2910593

PATIENT
  Age: 35 Year
  Sex: Female
  Weight: 83.082 kg

DRUGS (9)
  1. OCREVUS [Suspect]
     Active Substance: OCRELIZUMAB
     Indication: Relapsing-remitting multiple sclerosis
     Dosage: DATE OF PREVIOUS INFUSION: 12/02/2021
     Route: 042
     Dates: start: 201902, end: 20210212
  2. OCREVUS [Suspect]
     Active Substance: OCRELIZUMAB
     Dosage: THAN SUBSEQUENT 600 MG (TWO 300 MG VIALS)
     Route: 042
  3. IBUPROFEN [Concomitant]
     Active Substance: IBUPROFEN
  4. CYCLOBENZAPRINE [Concomitant]
     Active Substance: CYCLOBENZAPRINE
  5. TYLENOL [Concomitant]
     Active Substance: ACETAMINOPHEN
     Indication: Pain
     Dosage: AS NEEDED
  6. OXYCARBAZEPINA [Concomitant]
     Indication: Neuralgia
     Route: 048
     Dates: start: 20220525
  7. TIZANIDINE [Concomitant]
     Active Substance: TIZANIDINE
     Indication: Muscle spasms
     Dosage: 2 OR 3 TIMES A DAY
     Route: 048
  8. AMANTADINE [Concomitant]
     Active Substance: AMANTADINE
  9. LYSTEDA [Concomitant]
     Active Substance: TRANEXAMIC ACID

REACTIONS (7)
  - Maternal exposure before pregnancy [Unknown]
  - COVID-19 [Recovered/Resolved]
  - Pain [Not Recovered/Not Resolved]
  - Suppressed lactation [Recovered/Resolved]
  - Musculoskeletal disorder [Recovered/Resolved]
  - Kidney fibrosis [Not Recovered/Not Resolved]
  - Blood creatinine decreased [Not Recovered/Not Resolved]

NARRATIVE: CASE EVENT DATE: 20210301
